FAERS Safety Report 4283130-7 (Version None)
Quarter: 2004Q1

REPORT INFORMATION
  Report Type: 
  Country: None (occurrence: None)
  Receive Date: 20040122
  Receipt Date: 20031114
  Transmission Date: 20041129
  Serious: Yes (Other)
  Sender: FDA-Public Use
  Company Number: 200310804BCA

PATIENT

DRUGS (1)
  1. IMMUNEGLOBULIN INTRAVENOUS (HUMAN) - MANUFACTURER UNKNOWN [Suspect]
     Dosage: INTRAVENOUS
     Route: 042

REACTIONS (1)
  - HIV TEST POSITIVE [None]
